FAERS Safety Report 21044601 (Version 1)
Quarter: 2022Q3

REPORT INFORMATION
  Report Type: Spontaneous
  Country: US (occurrence: US)
  Receive Date: 20220705
  Receipt Date: 20220705
  Transmission Date: 20221027
  Serious: No
  Sender: FDA-Public Use
  Company Number: US-BAUSCH-BL-2022-016531

PATIENT
  Sex: Female

DRUGS (1)
  1. CYCLOPENTOLATE HYDROCHLORIDE [Suspect]
     Active Substance: CYCLOPENTOLATE HYDROCHLORIDE
     Indication: Cataract operation
     Dosage: 1 DROP IN LEFT EYE TWICE DAILY.
     Route: 047
     Dates: start: 20220622, end: 20220622

REACTIONS (5)
  - Instillation site discomfort [Unknown]
  - Mydriasis [Unknown]
  - Instillation site erythema [Unknown]
  - Instillation site irritation [Unknown]
  - Vision blurred [Unknown]

NARRATIVE: CASE EVENT DATE: 20220601
